FAERS Safety Report 7645149-5 (Version None)
Quarter: 2011Q3

REPORT INFORMATION
  Report Type: 
  Country: None (occurrence: None)
  Receive Date: 20110729
  Receipt Date: 20110719
  Transmission Date: 20111222
  Serious: Yes (Other)
  Sender: FDA-Public Use
  Company Number: CA-JNJFOC-20110708230

PATIENT
  Age: 17 Year
  Sex: Female

DRUGS (9)
  1. 5-AMINOSALICYLIC ACID [Concomitant]
  2. VITAMIN B [Concomitant]
  3. INFLIXIMAB, RECOMBINANT [Suspect]
     Indication: CROHN'S DISEASE
     Route: 042
  4. LANSOPRAZOLE [Concomitant]
  5. ASCORBIC ACID [Concomitant]
  6. CIPROFLOXACIN [Concomitant]
  7. PREDNISONE [Concomitant]
  8. VITAMIN A [Concomitant]
  9. CALCIUM WITH VITAMIN D [Concomitant]

REACTIONS (1)
  - TAKAYASU'S ARTERITIS [None]
